FAERS Safety Report 13457512 (Version 1)
Quarter: 2017Q2

REPORT INFORMATION
  Report Type: Spontaneous
  Country: US (occurrence: US)
  Receive Date: 20170419
  Receipt Date: 20170419
  Transmission Date: 20170830
  Serious: Yes (Other)
  Sender: FDA-Public Use
  Company Number: None

PATIENT
  Age: 69 Year
  Sex: Female
  Weight: 93.15 kg

DRUGS (1)
  1. REPATHA [Suspect]
     Active Substance: EVOLOCUMAB
     Indication: LOW DENSITY LIPOPROTEIN INCREASED
     Dosage: QUANTITY:1 SURECLICK;OTHER FREQUENCY:EVERY 14 DAYS;?
     Route: 061
     Dates: start: 20170303, end: 20170410

REACTIONS (2)
  - Rash [None]
  - Nausea [None]

NARRATIVE: CASE EVENT DATE: 20170410
